FAERS Safety Report 21028017 (Version 2)
Quarter: 2022Q3

REPORT INFORMATION
  Report Type: Report from Study
  Country: ZA (occurrence: ZA)
  Receive Date: 20220630
  Receipt Date: 20220705
  Transmission Date: 20221027
  Serious: Yes (Hospitalization, Other)
  Sender: FDA-Public Use
  Company Number: ZA-NOVARTISPH-NVSC2022ZA126409

PATIENT
  Age: 53 Year
  Sex: Female

DRUGS (7)
  1. SIPONIMOD [Suspect]
     Active Substance: SIPONIMOD
     Indication: Secondary progressive multiple sclerosis
     Dosage: 0.25 MG, QD (TITRATION DAY 1)
     Route: 048
     Dates: start: 20220531
  2. SIPONIMOD [Suspect]
     Active Substance: SIPONIMOD
     Dosage: 0.25 MG, (TITRATION DAY 3)
     Route: 065
     Dates: start: 20220602
  3. SIPONIMOD [Suspect]
     Active Substance: SIPONIMOD
     Dosage: 2 MG
     Route: 048
  4. SIPONIMOD [Suspect]
     Active Substance: SIPONIMOD
     Dosage: 2 MG, QD
     Route: 048
     Dates: end: 20220626
  5. ZOLPIDEM TARTRATE [Concomitant]
     Active Substance: ZOLPIDEM TARTRATE
     Indication: Product used for unknown indication
     Dosage: UNK
     Route: 065
  6. VITAMINS NOS [Concomitant]
     Active Substance: VITAMINS
     Indication: Product used for unknown indication
     Dosage: UNK
     Route: 065
  7. XARELTO [Concomitant]
     Active Substance: RIVAROXABAN
     Indication: Product used for unknown indication
     Dosage: UNK, QD
     Route: 065

REACTIONS (8)
  - Lung perforation [Unknown]
  - Rib fracture [Unknown]
  - Fall [Unknown]
  - Confusional state [Recovered/Resolved]
  - Disorientation [Unknown]
  - Dizziness [Recovering/Resolving]
  - Skin abrasion [Unknown]
  - Contusion [Unknown]

NARRATIVE: CASE EVENT DATE: 20220531
